FAERS Safety Report 6887357-7 (Version None)
Quarter: 2010Q3

REPORT INFORMATION
  Report Type: 
  Country: None (occurrence: None)
  Receive Date: 20100730
  Receipt Date: 20090930
  Transmission Date: 20110219
  Serious: No
  Sender: FDA-Public Use
  Company Number: A0809743A

PATIENT
  Age: 45 Year
  Sex: Female

DRUGS (3)
  1. IMITREX [Suspect]
     Indication: MIGRAINE
     Route: 048
  2. METOPROLOL TARTRATE [Concomitant]
  3. ZYRTEC [Concomitant]

REACTIONS (1)
  - SKIN DISCOLOURATION [None]
